FAERS Safety Report 7755446-0 (Version None)
Quarter: 2011Q3

REPORT INFORMATION
  Report Type: 
  Country: None (occurrence: None)
  Receive Date: 20110914
  Receipt Date: 20110901
  Transmission Date: 20111222
  Serious: Yes (Other)
  Sender: FDA-Public Use
  Company Number: 2010MA004210

PATIENT
  Sex: Female

DRUGS (14)
  1. METOCLOPRAMIDE [Suspect]
     Indication: ABDOMINAL PAIN
     Dosage: 10 MG;QID;PO
     Route: 048
     Dates: start: 20081002, end: 20091026
  2. METOCLOPRAMIDE [Suspect]
     Indication: CONSTIPATION
     Dosage: 10 MG;QID;PO
     Route: 048
     Dates: start: 20081002, end: 20091026
  3. METOCLOPRAMIDE [Suspect]
     Indication: MUSCLE SPASMS
     Dosage: 10 MG;QID;PO
     Route: 048
     Dates: start: 20081002, end: 20091026
  4. LORTAB [Concomitant]
  5. VICODIN [Concomitant]
  6. CHANTIX [Concomitant]
  7. AMBIEN [Concomitant]
  8. BONTRIL [Concomitant]
  9. XANAX [Concomitant]
  10. ADIPEX [Concomitant]
  11. ACIPHEX [Concomitant]
  12. LEVSIN [Concomitant]
  13. FLUOXETINE [Concomitant]
  14. REQUIP [Concomitant]

REACTIONS (7)
  - ECONOMIC PROBLEM [None]
  - DEPRESSION [None]
  - ABDOMINAL PAIN [None]
  - RESTLESS LEGS SYNDROME [None]
  - EMOTIONAL DISTRESS [None]
  - TARDIVE DYSKINESIA [None]
  - SLEEP DISORDER [None]
